FAERS Safety Report 10175334 (Version 2)
Quarter: 2014Q2

REPORT INFORMATION
  Report Type: Report from Study
  Country: US (occurrence: US)
  Receive Date: 20140515
  Receipt Date: 20140515
  Transmission Date: 20141212
  Serious: Yes (Other)
  Sender: FDA-Public Use
  Company Number: US-PFIZER INC-HQWYE280221JUL06

PATIENT
  Age: 37 Year
  Sex: Female
  Weight: 66.9 kg

DRUGS (6)
  1. DESVENLAFAXINE SUCCINATE MONOHYDRATE [Suspect]
     Indication: FIBROMYALGIA
     Dosage: 50 MG, 1X/DAY
     Route: 048
     Dates: start: 20060601, end: 20060610
  2. DESVENLAFAXINE SUCCINATE MONOHYDRATE [Suspect]
     Dosage: 100 MG, 1X/DAY
     Route: 048
     Dates: start: 20060611
  3. TOPAMAX [Suspect]
     Dosage: UNK
  4. LANSOPRAZOLE [Concomitant]
  5. RANITIDINE HYDROCHLORIDE [Concomitant]
  6. SIMETHICONE [Concomitant]

REACTIONS (1)
  - Angle closure glaucoma [Recovered/Resolved]
